FAERS Safety Report 6937454-2 (Version None)
Quarter: 2010Q3

REPORT INFORMATION
  Report Type: 
  Country: None (occurrence: None)
  Receive Date: 20100823
  Receipt Date: 20100823
  Transmission Date: 20110219
  Serious: No
  Sender: FDA-Public Use
  Company Number: None

PATIENT
  Age: 36 Year
  Sex: Male

DRUGS (1)
  1. OXYCONTIN [Suspect]
     Indication: RADICULITIS CERVICAL
     Dosage: 2 TID + 1 HS, CURRENT
     Dates: start: 20100818, end: 20100820

REACTIONS (5)
  - ASTHENIA [None]
  - DIZZINESS [None]
  - FATIGUE [None]
  - HEADACHE [None]
  - SENSATION OF HEAVINESS [None]
